FAERS Safety Report 8115318-9 (Version None)
Quarter: 2012Q1

REPORT INFORMATION
  Report Type: 
  Country: None (occurrence: None)
  Receive Date: 20120206
  Receipt Date: 20120126
  Transmission Date: 20120608
  Serious: Yes (Hospitalization)
  Sender: FDA-Public Use
  Company Number: US-JNJFOC-20120103248

PATIENT
  Age: 33 Year
  Sex: Female
  Weight: 91.2 kg

DRUGS (3)
  1. ACETAMINOPHEN [Suspect]
     Route: 048
  2. ACETAMINOPHEN [Suspect]
     Indication: PRODUCT USED FOR UNKNOWN INDICATION
     Dosage: ESTIMATED 60-80 TABLETS
     Route: 048
     Dates: start: 20120104, end: 20120104
  3. IBUPROFEN [Suspect]
     Indication: PRODUCT USED FOR UNKNOWN INDICATION
     Dosage: 40 TABLETS
     Route: 048
     Dates: start: 20120104, end: 20120104

REACTIONS (3)
  - SELF INJURIOUS BEHAVIOUR [None]
  - VOMITING [None]
  - MULTIPLE DRUG OVERDOSE INTENTIONAL [None]
